FAERS Safety Report 7692633-4 (Version None)
Quarter: 2011Q3

REPORT INFORMATION
  Report Type: 
  Country: None (occurrence: None)
  Receive Date: 20110819
  Receipt Date: 20110621
  Transmission Date: 20111222
  Serious: Yes (Life-Threatening, Hospitalization)
  Sender: FDA-Public Use
  Company Number: FR-RANBAXY-2010RR-34904

PATIENT
  Age: 58 Year
  Sex: Male

DRUGS (9)
  1. TRANXENE [Concomitant]
     Route: 048
  2. PRAVASTATIN [Suspect]
     Indication: PRODUCT USED FOR UNKNOWN INDICATION
     Dosage: 20 MG, UNK
     Route: 048
     Dates: start: 20090114, end: 20090118
  3. CELEBREX [Suspect]
     Indication: PRODUCT USED FOR UNKNOWN INDICATION
     Dosage: 20 MG, UNK
     Route: 048
     Dates: start: 20050101, end: 20090114
  4. TRIMEPRAZINE TARTRATE [Concomitant]
     Route: 048
  5. HALDOL [Concomitant]
     Route: 048
  6. VALPROIC ACID [Suspect]
     Indication: PRODUCT USED FOR UNKNOWN INDICATION
     Route: 048
  7. ZOLPIDEM [Concomitant]
     Indication: PRODUCT USED FOR UNKNOWN INDICATION
     Route: 048
  8. TERCIAN [Concomitant]
     Route: 048
  9. FENOFIBRATE [Suspect]
     Indication: PRODUCT USED FOR UNKNOWN INDICATION
     Dosage: UNK
     Route: 048
     Dates: start: 20050101, end: 20090114

REACTIONS (4)
  - RENAL FAILURE ACUTE [None]
  - MYALGIA [None]
  - HEPATIC FAILURE [None]
  - RHABDOMYOLYSIS [None]
